FAERS Safety Report 21802521 (Version 1)
Quarter: 2022Q4

REPORT INFORMATION
  Report Type: Spontaneous
  Country: NL (occurrence: NL)
  Receive Date: 20221231
  Receipt Date: 20221231
  Transmission Date: 20230113
  Serious: Yes (Other)
  Sender: FDA-Public Use
  Company Number: NL-LRB-00856373

PATIENT
  Sex: Female
  Weight: 85 kg

DRUGS (3)
  1. FLUOXETINE [Suspect]
     Active Substance: FLUOXETINE HYDROCHLORIDE
     Indication: Depression
     Dosage: 20 MILLIGRAM (3 DAY) (1 PIECE OF TABLET EVERY OTHER DAY)
     Route: 065
     Dates: start: 20080101
  2. FLECAINIDE [Suspect]
     Active Substance: FLECAINIDE
     Indication: Arrhythmia
     Dosage: 1 DOSAGE FORM (TABLET, 50 MG (MILLIGRAM),
     Route: 065
     Dates: start: 20180601, end: 20210201
  3. LEVOTHYROXINE [Concomitant]
     Active Substance: LEVOTHYROXINE
     Indication: Product used for unknown indication
     Dosage: 112 MICROGRAM (CAPSULE, 112 ?G (MICROGRAM)
     Route: 065

REACTIONS (2)
  - Polyneuropathy [Recovered/Resolved]
  - Paraesthesia [Recovered/Resolved]
